FAERS Safety Report 10491890 (Version 1)
Quarter: 2014Q4

REPORT INFORMATION
  Report Type: Spontaneous
  Country: NO (occurrence: NO)
  Receive Date: 20141002
  Receipt Date: 20141002
  Transmission Date: 20150528
  Serious: Yes (Life-Threatening)
  Sender: FDA-Public Use
  Company Number: PHHY2014NO125811

PATIENT

DRUGS (1)
  1. METHOTREXATE [Suspect]
     Active Substance: METHOTREXATE
     Indication: LEUKAEMIA
     Dosage: 240 MG, SINGLE
     Route: 037
     Dates: start: 20140918, end: 20140918

REACTIONS (2)
  - Accidental overdose [Recovering/Resolving]
  - Unresponsive to stimuli [Recovering/Resolving]

NARRATIVE: CASE EVENT DATE: 20140918
